FAERS Safety Report 5535559-4 (Version None)
Quarter: 2007Q4

REPORT INFORMATION
  Report Type: 
  Country: None (occurrence: None)
  Receive Date: 20071206
  Receipt Date: 20071121
  Transmission Date: 20080405
  Serious: Yes (Other)
  Sender: FDA-Public Use
  Company Number: JP-ASTRAZENECA-2007AP07397

PATIENT
  Age: 55 Year
  Sex: Male

DRUGS (4)
  1. SEROQUEL [Suspect]
     Indication: SCHIZOPHRENIA
     Route: 048
     Dates: start: 20071019, end: 20071020
  2. SEROQUEL [Suspect]
     Route: 048
     Dates: start: 20071021, end: 20071022
  3. SEROQUEL [Suspect]
     Route: 048
     Dates: start: 20071023, end: 20071024
  4. SEROQUEL [Suspect]
     Route: 048
     Dates: start: 20071025, end: 20071103

REACTIONS (2)
  - RESPIRATORY DEPRESSION [None]
  - SEDATION [None]
